FAERS Safety Report 10100363 (Version 2)
Quarter: 2014Q3

REPORT INFORMATION
  Report Type: Spontaneous
  Country: US (occurrence: US)
  Receive Date: 20140423
  Receipt Date: 20140811
  Transmission Date: 20150326
  Serious: Yes (Hospitalization)
  Sender: FDA-Public Use
  Company Number: US-BAYER-2014-059153

PATIENT
  Age: 31 Year
  Sex: Female
  Weight: 108.84 kg

DRUGS (1)
  1. MIRENA [Suspect]
     Active Substance: LEVONORGESTREL
     Indication: CONTRACEPTION
     Dosage: 20 MCG/24HR, CONT
     Route: 015
     Dates: start: 2009, end: 20110405

REACTIONS (14)
  - Pericardial effusion [None]
  - Abdominal pain [None]
  - Injury [None]
  - Malaise [None]
  - Device issue [None]
  - Emotional distress [None]
  - Depression [None]
  - Uterine perforation [None]
  - Pelvic pain [None]
  - Gastric disorder [None]
  - Diaphragmatic disorder [None]
  - Pneumothorax [None]
  - Medical device complication [None]
  - Anxiety [None]

NARRATIVE: CASE EVENT DATE: 20110404
